FAERS Safety Report 5634947-5 (Version None)
Quarter: 2008Q1

REPORT INFORMATION
  Report Type: 
  Country: None (occurrence: None)
  Receive Date: 20080222
  Receipt Date: 20080218
  Transmission Date: 20080703
  Serious: Yes (Death, Other)
  Sender: FDA-Public Use
  Company Number: JP-BRISTOL-MYERS SQUIBB COMPANY-14045058

PATIENT
  Age: 53 Year
  Sex: Female

DRUGS (1)
  1. BARACLUDE [Suspect]
     Indication: HEPATITIS B
     Route: 048
     Dates: start: 20070619

REACTIONS (3)
  - LUNG NEOPLASM MALIGNANT [None]
  - RESPIRATORY FAILURE [None]
  - UTERINE LEIOMYOMA [None]
